FAERS Safety Report 11498314 (Version 5)
Quarter: 2019Q3

REPORT INFORMATION
  Report Type: Spontaneous
  Country: US (occurrence: US)
  Receive Date: 20150911
  Receipt Date: 20190702
  Transmission Date: 20191004
  Serious: Yes (Hospitalization, Other)
  Sender: FDA-Public Use
  Company Number: US-DSJP-DSU-2015-118060

PATIENT

DRUGS (4)
  1. BENICAR [Suspect]
     Active Substance: OLMESARTAN MEDOXOMIL
     Indication: PRODUCT USED FOR UNKNOWN INDICATION
     Dosage: 20 MG, QD
     Route: 048
     Dates: start: 2006, end: 201405
  2. BENICAR HCT [Suspect]
     Active Substance: HYDROCHLOROTHIAZIDE\OLMESARTAN MEDOXOMIL
     Dosage: 40/25 MG 1/2 TABLET, QD
     Dates: start: 2006, end: 201405
  3. BENICAR HCT [Suspect]
     Active Substance: HYDROCHLOROTHIAZIDE\OLMESARTAN MEDOXOMIL
     Indication: HYPERTENSION
     Dosage: 40/25MG, UNK
  4. BENICAR HCT [Suspect]
     Active Substance: HYDROCHLOROTHIAZIDE\OLMESARTAN MEDOXOMIL
     Indication: FLUID RETENTION
     Dosage: 20/12.5MG, QD
     Route: 048
     Dates: start: 2006, end: 201405

REACTIONS (13)
  - Off label use [Unknown]
  - Sprue-like enteropathy [Recovering/Resolving]
  - Cellulitis [Unknown]
  - Product administration error [Unknown]
  - Gastrointestinal haemorrhage [Unknown]
  - Small intestine ulcer [Recovered/Resolved]
  - Haemorrhoids [Unknown]
  - Coeliac disease [Recovered/Resolved]
  - Dysphagia [Unknown]
  - Depression [Not Recovered/Not Resolved]
  - Small intestinal obstruction [Recovered/Resolved]
  - Crohn^s disease [Not Recovered/Not Resolved]
  - Acute kidney injury [Unknown]

NARRATIVE: CASE EVENT DATE: 20090106
